FAERS Safety Report 13096812 (Version 1)
Quarter: 2017Q1

REPORT INFORMATION
  Report Type: Spontaneous
  Country: US (occurrence: US)
  Receive Date: 20170104
  Receipt Date: 20170104
  Transmission Date: 20170428
  Serious: Yes (Other)
  Sender: FDA-Public Use
  Company Number: None

PATIENT
  Age: 60 Year
  Sex: Female

DRUGS (1)
  1. REVLIMID [Suspect]
     Active Substance: LENALIDOMIDE
     Indication: PARAPROTEINAEMIA
     Route: 048
     Dates: start: 20161205

REACTIONS (7)
  - Dysgeusia [None]
  - Neck pain [None]
  - Fatigue [None]
  - Anxiety [None]
  - Musculoskeletal pain [None]
  - Diarrhoea [None]
  - Dry mouth [None]

NARRATIVE: CASE EVENT DATE: 20161228
